FAERS Safety Report 7800037-6 (Version None)
Quarter: 2011Q4

REPORT INFORMATION
  Report Type: 
  Country: None (occurrence: None)
  Receive Date: 20111006
  Receipt Date: 20111003
  Transmission Date: 20120403
  Serious: No
  Sender: FDA-Public Use
  Company Number: US-TEVA-303653USA

PATIENT
  Sex: Female

DRUGS (3)
  1. COPAXONE [Suspect]
     Indication: RELAPSING-REMITTING MULTIPLE SCLEROSIS
     Route: 058
     Dates: start: 20101101
  2. FERROUS SULFATE TAB [Concomitant]
     Indication: ANAEMIA
  3. VITAMIN TAB [Concomitant]

REACTIONS (2)
  - LYMPHADENOPATHY [None]
  - HEPATIC CYST [None]
